FAERS Safety Report 4884343-3 (Version None)
Quarter: 2006Q1

REPORT INFORMATION
  Report Type: 
  Country: None (occurrence: None)
  Receive Date: 20060118
  Receipt Date: 20060109
  Transmission Date: 20060701
  Serious: Yes (Hospitalization, Other)
  Sender: FDA-Public Use
  Company Number: AU-ABBOTT-06P-008-0321729-00

PATIENT
  Sex: Male

DRUGS (7)
  1. KALETRA [Suspect]
     Indication: DRUG USE FOR UNKNOWN INDICATION
     Route: 048
     Dates: start: 20030115, end: 20050713
  2. LAMIVUDINE [Suspect]
     Indication: DRUG USE FOR UNKNOWN INDICATION
     Route: 048
     Dates: start: 20030115, end: 20050713
  3. TENOFOVIR DISOPROXIL FUMARATE [Suspect]
     Indication: DRUG USE FOR UNKNOWN INDICATION
     Route: 048
     Dates: start: 20030315, end: 20050713
  4. VALACYCLOVIR HCL [Suspect]
     Indication: DRUG USE FOR UNKNOWN INDICATION
     Route: 048
     Dates: end: 20050713
  5. RAMIPRIL [Suspect]
     Indication: DRUG USE FOR UNKNOWN INDICATION
     Route: 048
     Dates: end: 20050713
  6. PRAVASTATIN SODIUM [Suspect]
     Indication: DRUG USE FOR UNKNOWN INDICATION
     Route: 048
     Dates: end: 20050713
  7. CEFTRIAXONE [Concomitant]

REACTIONS (5)
  - ACIDOSIS [None]
  - ACUTE PULMONARY OEDEMA [None]
  - CHEST PAIN [None]
  - RENAL FAILURE ACUTE [None]
  - UNEVALUABLE EVENT [None]
